FAERS Safety Report 8272955-9 (Version None)
Quarter: 2012Q2

REPORT INFORMATION
  Report Type: 
  Country: None (occurrence: None)
  Receive Date: 20120411
  Receipt Date: 20120403
  Transmission Date: 20120825
  Serious: Yes (Hospitalization)
  Sender: FDA-Public Use
  Company Number: US-BAYER-2011-105724

PATIENT
  Age: 28 Year
  Sex: Female

DRUGS (9)
  1. LUPRON [Concomitant]
  2. KEFLEX [Concomitant]
  3. IRON SULFATETHIAMIN COMPOUND TAB [Concomitant]
     Dosage: 325 MG, UNK
     Route: 048
     Dates: start: 19970312, end: 20020528
  4. ALLEGRA [Concomitant]
     Dosage: 60 MG, UNK
     Route: 048
     Dates: start: 20020502, end: 20020528
  5. METRONIDAZOLE [Concomitant]
     Dosage: 500 MG, UNK
     Route: 048
     Dates: start: 19990607, end: 20050516
  6. DARVOCET [Concomitant]
  7. NAPROXEN [Concomitant]
     Dosage: 375 MG, UNK
     Route: 048
     Dates: start: 19970312, end: 20031002
  8. YASMIN [Suspect]
     Dosage: UNK
     Dates: start: 20020501, end: 20020601
  9. PROVERA [Concomitant]

REACTIONS (6)
  - DEEP VEIN THROMBOSIS [None]
  - ANXIETY [None]
  - PAIN [None]
  - INJURY [None]
  - EMOTIONAL DISTRESS [None]
  - GENERAL PHYSICAL HEALTH DETERIORATION [None]
